FAERS Safety Report 19098971 (Version 1)
Quarter: 2021Q2

REPORT INFORMATION
  Report Type: Spontaneous
  Country: US (occurrence: US)
  Receive Date: 20210406
  Receipt Date: 20210406
  Transmission Date: 20210717
  Serious: Yes (Other)
  Sender: FDA-Public Use
  Company Number: US-GLAXOSMITHKLINE-US2021GSK074391

PATIENT
  Sex: Female

DRUGS (2)
  1. ZANTAC [Suspect]
     Active Substance: RANITIDINE HYDROCHLORIDE
     Indication: MALIGNANT MELANOMA
     Dosage: 150 MG, QD,2 TIMES DAILY
     Route: 065
     Dates: start: 199706, end: 202006
  2. ZANTAC [Suspect]
     Active Substance: RANITIDINE HYDROCHLORIDE
     Indication: MALIGNANT MELANOMA
     Dosage: 150 MG, QD,2 TIMES DAILY
     Route: 065
     Dates: start: 199706, end: 202006

REACTIONS (2)
  - Uterine cancer [Unknown]
  - Malignant melanoma [Unknown]
